FAERS Safety Report 8800133 (Version 1)
Quarter: 2012Q4

REPORT INFORMATION
  Report Type: 
  Country: DE (occurrence: FR)
  Receive Date: 20120921
  Receipt Date: 20120921
  Transmission Date: 20130627
  Serious: Yes (Hospitalization)
  Sender: FDA-Public Use
  Company Number: FR-BRISTOL-MYERS SQUIBB COMPANY-16977993

PATIENT
  Age: 58 Year
  Sex: Female

DRUGS (6)
  1. METFORMIN HCL TABS [Suspect]
     Indication: TYPE 2 DIABETES MELLITUS
     Route: 048
  2. LEVOTHYROX [Suspect]
     Indication: HYPOTHYROIDISM
     Dosage: Strength Levothyrox 100mcg tabs,1DF
     Route: 048
  3. DIAMICRON [Suspect]
     Indication: TYPE 2 DIABETES MELLITUS
     Dosage: 3DF,3 PER 1 DAY
     Route: 048
  4. TAHOR [Suspect]
     Indication: DYSLIPIDAEMIA
     Route: 048
  5. TRIATEC [Suspect]
     Dosage: 1DF
     Route: 048
  6. JANUVIA [Concomitant]
     Indication: TYPE 2 DIABETES MELLITUS
     Route: 048
     Dates: start: 201108, end: 201205

REACTIONS (1)
  - Pancreatitis acute [Not Recovered/Not Resolved]
